FAERS Safety Report 18837770 (Version 9)
Quarter: 2022Q1

REPORT INFORMATION
  Report Type: Report from Study
  Country: US (occurrence: US)
  Receive Date: 20210203
  Receipt Date: 20220124
  Transmission Date: 20220423
  Serious: No
  Sender: FDA-Public Use
  Company Number: NVSC2021US016745

PATIENT
  Sex: Male

DRUGS (6)
  1. COSENTYX [Suspect]
     Active Substance: SECUKINUMAB
     Indication: Psoriatic arthropathy
     Dosage: 150 MG, QMO, BENEATH THE SKIN, USUALLY VIA INJECTRION
     Route: 058
  2. COSENTYX [Suspect]
     Active Substance: SECUKINUMAB
     Dosage: 150 MG, QMO
     Route: 058
  3. COSENTYX [Suspect]
     Active Substance: SECUKINUMAB
     Dosage: UNK
     Route: 065
  4. COSENTYX [Suspect]
     Active Substance: SECUKINUMAB
     Dosage: UNK
     Route: 065
  5. COSENTYX [Suspect]
     Active Substance: SECUKINUMAB
     Dosage: 150 MG QMO
     Route: 058
  6. COSENTYX [Suspect]
     Active Substance: SECUKINUMAB
     Dosage: 150 MG QMO(BENEATH THE SKIN,USUALLY VIA INJECTION)
     Route: 058

REACTIONS (9)
  - Inflammation [Unknown]
  - Carpal tunnel syndrome [Unknown]
  - Grip strength decreased [Unknown]
  - Injection site bruising [Unknown]
  - Asthenia [Unknown]
  - Arthralgia [Unknown]
  - Discomfort [Unknown]
  - Tendonitis [Unknown]
  - Injection site haemorrhage [Unknown]
